FAERS Safety Report 9464329 (Version 3)
Quarter: 2013Q3

REPORT INFORMATION
  Report Type: Spontaneous
  Country: AU (occurrence: AU)
  Receive Date: 20130819
  Receipt Date: 20130903
  Transmission Date: 20140515
  Serious: Yes (Other)
  Sender: FDA-Public Use
  Company Number: PHHY2013AU084772

PATIENT
  Sex: Female

DRUGS (5)
  1. RITALIN [Suspect]
     Indication: NARCOLEPSY
     Dosage: 1-3 DF OF 10 MG AS REQUIRED
     Route: 048
     Dates: start: 1990
  2. INSULIN [Interacting]
     Dosage: UNK UKN, UNK
  3. LANTUS [Concomitant]
     Dosage: UNK UKN, UNK
     Route: 058
  4. MAXOLON [Concomitant]
     Dosage: 1 DF, 6 HOURLY DAILY
  5. NOVORAPID [Concomitant]
     Dosage: 8 U, UNK
     Route: 058

REACTIONS (6)
  - Goitre [Unknown]
  - Huerthle cell carcinoma [Unknown]
  - Thyroiditis chronic [Unknown]
  - Thyroid neoplasm [Unknown]
  - Disturbance in attention [Unknown]
  - Drug interaction [Unknown]
